FAERS Safety Report 4804499-8 (Version None)
Quarter: 2005Q4

REPORT INFORMATION
  Report Type: 
  Country: None (occurrence: None)
  Receive Date: 20051017
  Receipt Date: 20050930
  Transmission Date: 20060501
  Serious: Yes (Hospitalization)
  Sender: FDA-Public Use
  Company Number: CIP05002311

PATIENT
  Age: 81 Year
  Sex: Male

DRUGS (12)
  1. FURADANTIN [Suspect]
     Indication: DYSURIA
     Dosage: 1 DF DAILY, ORAL
     Route: 048
     Dates: start: 20050811, end: 20050813
  2. OMEPRAZOLE [Concomitant]
  3. PREVISCAN (FLUINDIONE) TABLET [Concomitant]
  4. LOGIRENE (FUROSEMIDE, AMILORIDE HYDROCHLORIDE) [Concomitant]
  5. DOLIPRANE (PARACETAMOL) TABLET [Concomitant]
  6. TRIATEC (RAMIPRIL) CAPSULES [Concomitant]
  7. CORDARONE [Concomitant]
  8. HEPT-A-MYL (HEPTAMINOL HYDROCHLORIDE) [Concomitant]
  9. LEVOTHYROXINE SODIUM [Concomitant]
  10. DULCILARMES (POLYVIDONE) DROP [Concomitant]
  11. BRONCHODUAL (IPRATROPIUM BROMIDE, FENTEROL HYDROBROMIDE) POWDER [Concomitant]
  12. XATRAL    /FRA/ (ALFUZOSIN) [Concomitant]

REACTIONS (21)
  - ANOREXIA [None]
  - BILIARY CYST [None]
  - BLOOD AMYLASE INCREASED [None]
  - C-REACTIVE PROTEIN INCREASED [None]
  - CHOLELITHIASIS [None]
  - CHOLESTASIS [None]
  - CYTOLYTIC HEPATITIS [None]
  - DIZZINESS [None]
  - DYSPNOEA [None]
  - DYSURIA [None]
  - HAEMOGLOBIN DECREASED [None]
  - HEPATITIS ALCOHOLIC [None]
  - HYPERHIDROSIS [None]
  - HYPOTENSION [None]
  - LIPASE INCREASED [None]
  - MUSCULAR WEAKNESS [None]
  - OLIGURIA [None]
  - RENAL FAILURE [None]
  - SYNCOPE [None]
  - WEIGHT INCREASED [None]
  - WHITE BLOOD CELL COUNT INCREASED [None]
